FAERS Safety Report 7682962-2 (Version None)
Quarter: 2011Q3

REPORT INFORMATION
  Report Type: 
  Country: None (occurrence: None)
  Receive Date: 20110815
  Receipt Date: 20110808
  Transmission Date: 20111222
  Serious: Yes (Hospitalization)
  Sender: FDA-Public Use
  Company Number: US-ROCHE-796283

PATIENT
  Sex: Female

DRUGS (2)
  1. BEVACIZUMAB [Suspect]
     Dosage: UNK
     Route: 065
     Dates: end: 20110501
  2. RANIBIZUMAB [Suspect]
     Dosage: 0.5 UNK, 1/MONTH
     Route: 031
     Dates: start: 20110501

REACTIONS (3)
  - FALL [None]
  - BLOOD GLUCOSE INCREASED [None]
  - COMPRESSION FRACTURE [None]
